FAERS Safety Report 15767877 (Version 1)
Quarter: 2018Q4

REPORT INFORMATION
  Report Type: Spontaneous
  Country: SE (occurrence: SE)
  Receive Date: 20181227
  Receipt Date: 20181227
  Transmission Date: 20190205
  Serious: Yes (Hospitalization)
  Sender: FDA-Public Use
  Company Number: SE-PFIZER INC-HQWYE119620SEP04

PATIENT
  Age: 55 Year
  Sex: Male

DRUGS (1)
  1. CORDARONE [Suspect]
     Active Substance: AMIODARONE HYDROCHLORIDE
     Indication: ATRIAL FIBRILLATION
     Dosage: 200 MG, 2X/DAY
     Route: 048
     Dates: start: 20030401, end: 20030620

REACTIONS (3)
  - Dyspnoea [Recovered/Resolved]
  - Incorrect dose administered [Unknown]
  - Lung infiltration [Recovered/Resolved]

NARRATIVE: CASE EVENT DATE: 2003
